FAERS Safety Report 7544078-5 (Version None)
Quarter: 2011Q2

REPORT INFORMATION
  Report Type: 
  Country: None (occurrence: None)
  Receive Date: 20110613
  Receipt Date: 20051203
  Transmission Date: 20111010
  Serious: Yes (Death, Hospitalization)
  Sender: FDA-Public Use
  Company Number: PHHO2005PH18943

PATIENT
  Sex: Male

DRUGS (3)
  1. NORVASC [Concomitant]
  2. DIOVAN [Suspect]
     Indication: HYPERTENSION
     Dosage: 160 MG, QD
     Route: 048
     Dates: start: 20050415, end: 20051013
  3. MICARDIS [Concomitant]

REACTIONS (1)
  - MYOCARDIAL INFARCTION [None]
